FAERS Safety Report 5145994-4 (Version None)
Quarter: 2006Q4

REPORT INFORMATION
  Report Type: 
  Country: None (occurrence: None)
  Receive Date: 20061108
  Receipt Date: 20060922
  Transmission Date: 20070319
  Serious: Yes (Hospitalization)
  Sender: FDA-Public Use
  Company Number: DE-AVENTIS-200612842DE

PATIENT
  Age: 58 Year
  Sex: Female
  Weight: 45 kg

DRUGS (2)
  1. LANTUS [Suspect]
     Indication: DIABETES MELLITUS
     Dosage: DOSE: 14-20
     Route: 058
  2. INSULIN SHORT ACTING [Concomitant]
     Indication: DIABETES MELLITUS
     Dosage: DOSE: NOT REPORTED
     Route: 058

REACTIONS (3)
  - BLOOD GLUCOSE FLUCTUATION [None]
  - KETOACIDOSIS [None]
  - OEDEMA PERIPHERAL [None]
